FAERS Safety Report 5369484-9 (Version None)
Quarter: 2007Q2

REPORT INFORMATION
  Report Type: 
  Country: None (occurrence: None)
  Receive Date: 20070621
  Receipt Date: 20070611
  Transmission Date: 20071010
  Serious: Yes (Hospitalization)
  Sender: FDA-Public Use
  Company Number: 2007PV033016

PATIENT
  Age: 28 Year
  Sex: Female
  Weight: 54.4316 kg

DRUGS (6)
  1. SYMLIN [Suspect]
     Indication: DIABETES MELLITUS INSULIN-DEPENDENT
     Dosage: SEE IMAGE
     Route: 058
     Dates: start: 20060601, end: 20060601
  2. SYMLIN [Suspect]
     Indication: DIABETES MELLITUS INSULIN-DEPENDENT
     Dosage: SEE IMAGE
     Route: 058
     Dates: start: 20060701, end: 20060901
  3. SYMLIN [Suspect]
     Indication: DIABETES MELLITUS INSULIN-DEPENDENT
     Dosage: SEE IMAGE
     Route: 058
     Dates: start: 20060901, end: 20060901
  4. SYMLIN [Suspect]
     Indication: DIABETES MELLITUS INSULIN-DEPENDENT
     Dosage: SEE IMAGE
     Route: 058
     Dates: start: 20070501
  5. HUMALOG [Concomitant]
  6. LEVEMIR [Concomitant]

REACTIONS (10)
  - BLOOD GLUCOSE DECREASED [None]
  - BLOOD GLUCOSE INCREASED [None]
  - DECREASED APPETITE [None]
  - GASTRIC INFECTION [None]
  - GASTROINTESTINAL INFECTION [None]
  - SKIN LACERATION [None]
  - STAPHYLOCOCCAL INFECTION [None]
  - TREATMENT NONCOMPLIANCE [None]
  - VOMITING [None]
  - WEIGHT DECREASED [None]
